FAERS Safety Report 17959118 (Version 1)
Quarter: 2020Q2

REPORT INFORMATION
  Report Type: Spontaneous
  Country: FR (occurrence: FR)
  Receive Date: 20200629
  Receipt Date: 20200629
  Transmission Date: 20200714
  Serious: Yes (Hospitalization)
  Sender: FDA-Public Use
  Company Number: PHHY2019FR071195

PATIENT
  Age: 68 Year
  Sex: Male

DRUGS (11)
  1. LAROXYL [Suspect]
     Active Substance: AMITRIPTYLINE HYDROCHLORIDE
     Indication: PRODUCT USED FOR UNKNOWN INDICATION
     Dosage: 35 GTT, UNK (10 GOUTTES LE MATIN 25 GOUTTES LA NUIT)
     Route: 048
  2. ALPRAZOLAM. [Suspect]
     Active Substance: ALPRAZOLAM
     Indication: PRODUCT USED FOR UNKNOWN INDICATION
     Dosage: 0.5 MG, QD (2 COMPRIM?S DE 0.25MG LE MATIN)
     Route: 048
  3. ACICLOVIR [Suspect]
     Active Substance: ACYCLOVIR
     Indication: ENTEROBACTER SEPSIS
     Dosage: UNK
     Route: 042
     Dates: start: 20170215
  4. MORPHINE [Suspect]
     Active Substance: MORPHINE
     Indication: PAIN
     Dosage: 90 MG, UNK
     Route: 048
  5. CORTANCYL [Suspect]
     Active Substance: PREDNISONE
     Indication: ANTIEMETIC SUPPORTIVE CARE
     Dosage: UNK
     Route: 048
  6. VOGALENE [Suspect]
     Active Substance: METOPIMAZINE
     Indication: VOMITING
     Dosage: UNK
     Route: 048
  7. PRIMPERAN [Concomitant]
     Active Substance: METOCLOPRAMIDE HYDROCHLORIDE
     Indication: PRODUCT USED FOR UNKNOWN INDICATION
     Dosage: UNK
     Route: 065
  8. NEFOPAM HYDROCHLORIDE [Suspect]
     Active Substance: NEFOPAM HYDROCHLORIDE
     Indication: PAIN
     Dosage: UNK
     Route: 042
  9. AMIKACINE [Suspect]
     Active Substance: AMIKACIN
     Indication: ENTEROBACTER SEPSIS
     Dosage: UNK
     Route: 042
     Dates: start: 20170210, end: 20170210
  10. CEFEPIME [Suspect]
     Active Substance: CEFEPIME HYDROCHLORIDE
     Indication: ENTEROBACTER SEPSIS
     Dosage: UNK
     Route: 042
     Dates: start: 20170210, end: 20170213
  11. FORLAX [Suspect]
     Active Substance: POLYETHYLENE GLYCOL 4000
     Indication: PRODUCT USED FOR UNKNOWN INDICATION
     Dosage: UNK
     Route: 048

REACTIONS (2)
  - Pyrexia [Not Recovered/Not Resolved]
  - Somnolence [Recovered/Resolved]

NARRATIVE: CASE EVENT DATE: 201702
